FAERS Safety Report 21857949 (Version 2)
Quarter: 2023Q4

REPORT INFORMATION
  Report Type: Report from Study
  Country: KR (occurrence: KR)
  Receive Date: 20230113
  Receipt Date: 20231111
  Transmission Date: 20240110
  Serious: Yes (Hospitalization)
  Sender: FDA-Public Use
  Company Number: KR-SA-SAC20230111000796

PATIENT
  Age: 80 Year
  Sex: Male
  Weight: 57.3 kg

DRUGS (12)
  1. DUPILUMAB [Suspect]
     Active Substance: DUPILUMAB
     Indication: Asthma
     Dosage: 300 MG, QOW
     Route: 065
     Dates: start: 20221115, end: 20221115
  2. CLOPIRIN [Concomitant]
     Indication: Coronary arterial stent insertion
     Dosage: 75 MG, QD
     Route: 048
     Dates: start: 20220401
  3. LIPITOR [Concomitant]
     Active Substance: ATORVASTATIN CALCIUM
     Indication: Coronary arterial stent insertion
     Dosage: 40 MG, QD
     Route: 048
     Dates: start: 20211214
  4. VASTINAN MR [Concomitant]
     Indication: Coronary arterial stent insertion
     Dosage: 35 MG, BID
     Route: 048
     Dates: start: 20211214
  5. NICORANDIL [Concomitant]
     Active Substance: NICORANDIL
     Indication: Coronary arterial stent insertion
     Dosage: 5 MG, BID
     Route: 048
     Dates: start: 20220401
  6. DOXOFYLLINE [Concomitant]
     Active Substance: DOXOFYLLINE
     Indication: Asthma
     Dosage: 400 MG, BID
     Route: 048
     Dates: start: 20220110
  7. SPIRIVA RESPIMAT [Concomitant]
     Active Substance: TIOTROPIUM BROMIDE
     Indication: Asthma
     Dosage: 2 DF, QD
     Route: 055
     Dates: start: 20220510
  8. FOSTER [Concomitant]
     Active Substance: BECLOMETHASONE\FORMOTEROL
     Indication: Asthma
     Dosage: 2 DF, BID
     Route: 055
     Dates: start: 20220510
  9. DIABEX [Concomitant]
     Active Substance: METFORMIN HYDROCHLORIDE
     Indication: Diabetes mellitus
     Dosage: 500 MG, QD
     Route: 048
     Dates: start: 2021
  10. LASIX [Concomitant]
     Active Substance: FUROSEMIDE
     Indication: Dyspnoea
     Dosage: 40 MG, QD
     Route: 048
     Dates: start: 20221206
  11. ALDACTONE [Concomitant]
     Active Substance: SPIRONOLACTONE
     Indication: Dyspnoea
     Dosage: 12.75 MG, BID
     Route: 048
     Dates: start: 20221207
  12. DAPAGLIFLOZIN [Concomitant]
     Active Substance: DAPAGLIFLOZIN
     Indication: Dyspnoea
     Dosage: 10 MG, QD
     Route: 048
     Dates: start: 20221208

REACTIONS (2)
  - Dyspnoea [Recovered/Resolved]
  - Oedema peripheral [Recovered/Resolved]

NARRATIVE: CASE EVENT DATE: 20221129
